FAERS Safety Report 8110961-5 (Version None)
Quarter: 2012Q1

REPORT INFORMATION
  Report Type: 
  Country: None (occurrence: None)
  Receive Date: 20120203
  Receipt Date: 20110110
  Transmission Date: 20120608
  Serious: No
  Sender: FDA-Public Use
  Company Number: US-GLAXOSMITHKLINE-A0904966A

PATIENT
  Age: 50 Year
  Sex: Male

DRUGS (1)
  1. LAMICTAL [Suspect]
     Indication: BIPOLAR DISORDER
     Dosage: 150MG TWICE PER DAY
     Route: 048
     Dates: start: 20050101

REACTIONS (7)
  - PHOTOSENSITIVITY REACTION [None]
  - COORDINATION ABNORMAL [None]
  - FEELING ABNORMAL [None]
  - VISUAL IMPAIRMENT [None]
  - EYE PAIN [None]
  - HYPERAESTHESIA [None]
  - BALANCE DISORDER [None]
